FAERS Safety Report 15196728 (Version 1)
Quarter: 2018Q3

REPORT INFORMATION
  Report Type: Spontaneous
  Country: US (occurrence: US)
  Receive Date: 20180725
  Receipt Date: 20180725
  Transmission Date: 20181010
  Serious: Yes (Other)
  Sender: FDA-Public Use
  Company Number: US-SANIK-2018SA160568AA

PATIENT
  Age: 78 Year
  Sex: Male

DRUGS (1)
  1. PLAVIX [Suspect]
     Active Substance: CLOPIDOGREL BISULFATE
     Dosage: UNK

REACTIONS (4)
  - Pneumonia [Unknown]
  - Nerve root compression [Unknown]
  - Anaemia [Unknown]
  - Pulmonary alveolar haemorrhage [Unknown]
